FAERS Safety Report 8390412-6 (Version None)
Quarter: 2012Q2

REPORT INFORMATION
  Report Type: 
  Country: None (occurrence: None)
  Receive Date: 20120529
  Receipt Date: 20120516
  Transmission Date: 20120825
  Serious: Yes (Death, Other)
  Sender: FDA-Public Use
  Company Number: ES-VERTEX PHARMACEUTICALS INC.-000000000000000602

PATIENT
  Age: 52 Year
  Sex: Male

DRUGS (5)
  1. EPOGEN [Concomitant]
     Indication: ANAEMIA
     Dates: start: 20120403
  2. RIBAVIRIN [Concomitant]
     Indication: HEPATITIS C
     Route: 065
     Dates: start: 20110101
  3. ACETAMINOPHEN [Concomitant]
     Route: 048
  4. INCIVO (TELAPREVIR) [Suspect]
     Indication: HEPATITIS C
     Dosage: DOSAGE FORM: TABLET
     Route: 048
     Dates: start: 20120220, end: 20120418
  5. PEGINTERFERON ALFA [Concomitant]
     Indication: HEPATITIS C
     Route: 065
     Dates: start: 20110101

REACTIONS (3)
  - FATIGUE [None]
  - DIARRHOEA [None]
  - DEATH [None]
